FAERS Safety Report 4774859-2 (Version None)
Quarter: 2005Q3

REPORT INFORMATION
  Report Type: 
  Country: None (occurrence: None)
  Receive Date: 20050919
  Receipt Date: 20050909
  Transmission Date: 20060218
  Serious: Yes (Other)
  Sender: FDA-Public Use
  Company Number: 2005126361

PATIENT
  Age: 78 Year
  Sex: Male

DRUGS (2)
  1. CELEBREX [Suspect]
     Indication: ARTHRITIS
     Dosage: 200 MG (200 MG, 1 IN 1 D), ORAL
     Route: 048
  2. ACETAMINOPHEN [Concomitant]

REACTIONS (3)
  - CONTUSION [None]
  - HAEMOPTYSIS [None]
  - NASOPHARYNGEAL DISORDER [None]
